FAERS Safety Report 4414128-3 (Version None)
Quarter: 2004Q3

REPORT INFORMATION
  Report Type: 
  Country: None (occurrence: None)
  Receive Date: 20040728
  Receipt Date: 20040719
  Transmission Date: 20050211
  Serious: Yes (Other)
  Sender: FDA-Public Use
  Company Number: 1999-09-0482

PATIENT
  Age: 47 Year
  Sex: Male
  Weight: 79 kg

DRUGS (2)
  1. VIRAFERONPEG [Suspect]
     Indication: HEPATITIS C
     Dosage: 3 MU TIW SUBCUTANEOUS
     Route: 058
     Dates: start: 19990526, end: 20000526
  2. RIBAVIRIN [Suspect]
     Indication: HEPATITIS C
     Dosage: 1200 MG QD ORAL
     Route: 048
     Dates: start: 19990526, end: 20000526

REACTIONS (6)
  - BLOOD IRON INCREASED [None]
  - ECZEMA IMPETIGINOUS [None]
  - PHOTOSENSITIVITY REACTION [None]
  - PORPHYRIA NON-ACUTE [None]
  - SKIN LESION [None]
  - WEIGHT DECREASED [None]
